FAERS Safety Report 8645170 (Version 4)
Quarter: 2013Q1

REPORT INFORMATION
  Report Type: Spontaneous
  Country: JP (occurrence: JP)
  Receive Date: 20120702
  Receipt Date: 20130115
  Transmission Date: 20140127
  Serious: Yes (Hospitalization, Disabling)
  Sender: FDA-Public Use
  Company Number: PHHY2012JP055786

PATIENT
  Age: 70 Year
  Sex: Male

DRUGS (1)
  1. ZOMETA [Suspect]
     Indication: METASTASES TO BONE
     Dosage: 4 MG, PER DOSE/ MONTH X16
     Route: 041
     Dates: start: 200901, end: 20110510

REACTIONS (17)
  - Osteonecrosis of jaw [Recovering/Resolving]
  - Lymph node pain [Unknown]
  - Lymphadenopathy [Unknown]
  - Facial asymmetry [Unknown]
  - Osteitis [Unknown]
  - Bone swelling [Unknown]
  - Paraesthesia [Unknown]
  - Primary sequestrum [Unknown]
  - Impaired healing [Unknown]
  - Exposed bone in jaw [Unknown]
  - Erythema [Unknown]
  - Swelling [Unknown]
  - Gingival infection [Unknown]
  - Pain [Unknown]
  - Periodontitis [Unknown]
  - Hypoaesthesia [Unknown]
  - Osteomyelitis [Recovering/Resolving]
